FAERS Safety Report 24544082 (Version 1)
Quarter: 2024Q4

REPORT INFORMATION
  Report Type: Spontaneous
  Country: US (occurrence: None)
  Receive Date: 20241023
  Receipt Date: 20241023
  Transmission Date: 20250114
  Serious: Yes (Hospitalization)
  Sender: Public
  Company Number: None

PATIENT
  Sex: Female

DRUGS (10)
  1. ADAKVEO [Suspect]
     Active Substance: CRIZANLIZUMAB-TMCA
     Indication: Sickle cell disease
     Dosage: FREQ: INFUSE 5 MG/ KG QR 330 MG IN 100 ML NACL 0.9% OVER 30 MINUTES EVERY 28 DAYS?
     Route: 042
  2. ADAKVEO [Concomitant]
     Active Substance: CRIZANLIZUMAB-TMCA
  3. AMITRIPTYLINE [Concomitant]
     Active Substance: AMITRIPTYLINE
  4. BUPIVACAINE [Concomitant]
  5. CORLANOR [Concomitant]
  6. ELIQUIS [Concomitant]
     Active Substance: APIXABAN
  7. ESCITALOPRAM [Concomitant]
     Active Substance: ESCITALOPRAM OXALATE
  8. FAMOTIDINE [Concomitant]
     Active Substance: FAMOTIDINE
  9. FOLIC ACID [Concomitant]
     Active Substance: FOLIC ACID
  10. GABAPENTIN [Concomitant]
     Active Substance: GABAPENTIN

REACTIONS (5)
  - Vomiting [None]
  - Pain [None]
  - Back pain [None]
  - Sickle cell anaemia with crisis [None]
  - Intentional dose omission [None]
